FAERS Safety Report 7991216-6 (Version None)
Quarter: 2011Q4

REPORT INFORMATION
  Report Type: 
  Country: None (occurrence: None)
  Receive Date: 20111219
  Receipt Date: 20111215
  Transmission Date: 20120403
  Serious: Yes (Death, Life-Threatening, Hospitalization, Disabling, Other)
  Sender: FDA-Public Use
  Company Number: US-GLAXOSMITHKLINE-A0955917A

PATIENT
  Age: 40 Year
  Sex: Female
  Weight: 56.7 kg

DRUGS (3)
  1. FLOLAN [Suspect]
     Indication: SYSTEMIC SCLEROSIS
     Dosage: 81.4NGKM UNKNOWN
     Route: 042
     Dates: start: 20100518
  2. WARFARIN SODIUM [Concomitant]
     Dosage: 10MGD PER DAY
  3. REVATIO [Concomitant]
     Dosage: 20MG THREE TIMES PER DAY

REACTIONS (4)
  - SUBDURAL HAEMATOMA [None]
  - CELLULITIS [None]
  - HAEMORRHAGE INTRACRANIAL [None]
  - HAEMORRHAGE [None]
